FAERS Safety Report 16308146 (Version 1)
Quarter: 2019Q2

REPORT INFORMATION
  Report Type: Spontaneous
  Country: US (occurrence: US)
  Receive Date: 20190514
  Receipt Date: 20190514
  Transmission Date: 20190711
  Serious: Yes (Death, Other)
  Sender: FDA-Public Use
  Company Number: US-SA-2019SA129849

PATIENT
  Sex: Male

DRUGS (2)
  1. ZANTAC 75 [Suspect]
     Active Substance: RANITIDINE HYDROCHLORIDE
     Indication: CHEST PAIN
     Dosage: UNK UNK, UNK
     Route: 065
     Dates: start: 2013
  2. CALCIUM CARBONATE. [Suspect]
     Active Substance: CALCIUM CARBONATE
     Dosage: UNK UNK, UNK
     Route: 065
     Dates: start: 2013

REACTIONS (2)
  - Acute coronary syndrome [Fatal]
  - Product use in unapproved indication [Unknown]
